FAERS Safety Report 6702424-6 (Version None)
Quarter: 2010Q2

REPORT INFORMATION
  Report Type: 
  Country: None (occurrence: None)
  Receive Date: 20100429
  Receipt Date: 20100421
  Transmission Date: 20101027
  Serious: Yes (Other)
  Sender: FDA-Public Use
  Company Number: A0856117A

PATIENT
  Age: 57 Year
  Sex: Female

DRUGS (3)
  1. LAMICTAL [Suspect]
     Indication: BIPOLAR DISORDER
     Dosage: 400MG PER DAY
     Route: 048
     Dates: start: 20100301, end: 20100401
  2. EFFEXOR [Concomitant]
  3. KLONOPIN [Concomitant]

REACTIONS (3)
  - BLISTER [None]
  - HERPES ZOSTER [None]
  - PRURITUS [None]
